FAERS Safety Report 7444996-2 (Version None)
Quarter: 2011Q2

REPORT INFORMATION
  Report Type: 
  Country: None (occurrence: None)
  Receive Date: 20110429
  Receipt Date: 20110427
  Transmission Date: 20111010
  Serious: Yes (Other)
  Sender: FDA-Public Use
  Company Number: US-PFIZER INC-2011091789

PATIENT
  Sex: Female

DRUGS (1)
  1. CHANTIX [Suspect]

REACTIONS (10)
  - PNEUMONIA [None]
  - STRESS [None]
  - MALAISE [None]
  - DYSPNOEA [None]
  - MOOD ALTERED [None]
  - ANGER [None]
  - AGITATION [None]
  - INFLUENZA [None]
  - IRRITABILITY [None]
  - ASOCIAL BEHAVIOUR [None]
